FAERS Safety Report 19451598 (Version 1)
Quarter: 2021Q2

REPORT INFORMATION
  Report Type: Other
  Country: CA (occurrence: CA)
  Receive Date: 20210623
  Receipt Date: 20210623
  Transmission Date: 20210717
  Serious: Yes (Hospitalization)
  Sender: FDA-Public Use
  Company Number: CA-APOTEX-2021AP014677

PATIENT
  Age: 35 Year
  Sex: Female

DRUGS (1)
  1. ZOLEDRONIC ACID [Suspect]
     Active Substance: ZOLEDRONIC ACID
     Indication: PRODUCT USED FOR UNKNOWN INDICATION
     Dosage: UNK
     Route: 051

REACTIONS (12)
  - Myalgia [Unknown]
  - Tachycardia [Unknown]
  - Migraine [Unknown]
  - Abdominal pain [Unknown]
  - Feeling of body temperature change [Unknown]
  - Nausea [Unknown]
  - Head discomfort [Unknown]
  - Chills [Unknown]
  - Malaise [Unknown]
  - Headache [Unknown]
  - Pyrexia [Unknown]
  - Muscle spasms [Unknown]
